FAERS Safety Report 9285522 (Version 1)
Quarter: 2013Q2

REPORT INFORMATION
  Report Type: Spontaneous
  Country: US (occurrence: US)
  Receive Date: 20130513
  Receipt Date: 20130513
  Transmission Date: 20140414
  Serious: Yes (Other)
  Sender: FDA-Public Use
  Company Number: US-ROCHE-1223185

PATIENT
  Sex: Female

DRUGS (1)
  1. VALIUM [Suspect]
     Indication: PAIN
     Route: 065

REACTIONS (4)
  - Spinal laminectomy [Unknown]
  - Myelomalacia [Unknown]
  - Road traffic accident [Unknown]
  - Procedural pain [Unknown]
